FAERS Safety Report 5516887-5 (Version None)
Quarter: 2007Q4

REPORT INFORMATION
  Report Type: 
  Country: None (occurrence: None)
  Receive Date: 20071109
  Receipt Date: 20071025
  Transmission Date: 20080405
  Serious: Yes (Other)
  Sender: FDA-Public Use
  Company Number: S07-FRA-05785-01

PATIENT
  Age: 55 Year
  Sex: Female

DRUGS (2)
  1. ESCITALOPRAM [Suspect]
     Dosage: 20 MG QD PO
     Route: 048
  2. PANTOPRAZOLE SODIUM [Concomitant]

REACTIONS (1)
  - COLITIS [None]
